FAERS Safety Report 9324926 (Version 4)
Quarter: 2013Q3

REPORT INFORMATION
  Report Type: Spontaneous
  Country: US (occurrence: US)
  Receive Date: 20130603
  Receipt Date: 20130823
  Transmission Date: 20140515
  Serious: Yes (Other)
  Sender: FDA-Public Use
  Company Number: US-PFIZER INC-2013167278

PATIENT
  Age: 56 Year
  Sex: Male
  Weight: 108.84 kg

DRUGS (10)
  1. LIPITOR [Suspect]
     Indication: BLOOD CHOLESTEROL INCREASED
     Dosage: 20 MG, 1X/DAY
     Route: 048
  2. NEURONTIN [Suspect]
     Indication: PAIN
     Dosage: 600 MG, 3X/DAY
     Route: 048
  3. JANUVIA [Concomitant]
     Dosage: 50 MG, 1X/DAY
  4. AMITRIPTYLINE [Concomitant]
     Dosage: UNK
  5. BENICAR HCT [Concomitant]
     Dosage: [OLMESARTAN MEDOXOMIL 40MG]/[HYDROCHLOROTHIAZIDE 12.5 MG], 1X/DAY
  6. NEXIUM [Concomitant]
     Dosage: 40 MG, 1X/DAY
  7. GLIBURIDE/METFORMIN HYDROCHLORIDE [Concomitant]
     Dosage: 5/500 MG, 2X/DAY
     Route: 048
  8. ASPIRIN [Concomitant]
     Dosage: 81 MG, 1X/DAY
  9. AMBIEN CR [Concomitant]
     Dosage: 12.5 MG, 1X/DAY
  10. VICODIN [Concomitant]
     Dosage: UNK, AS NEEDED

REACTIONS (9)
  - Salmonellosis [Unknown]
  - Foot fracture [Unknown]
  - Blood pressure decreased [Unknown]
  - Diabetes mellitus inadequate control [Unknown]
  - Sleep apnoea syndrome [Unknown]
  - Hypertension [Unknown]
  - Malaise [Unknown]
  - Drug ineffective [Unknown]
  - Musculoskeletal pain [Unknown]
